FAERS Safety Report 6718235-1 (Version None)
Quarter: 2010Q2

REPORT INFORMATION
  Report Type: 
  Country: None (occurrence: None)
  Receive Date: 20100510
  Receipt Date: 20100427
  Transmission Date: 20101027
  Serious: Yes (Other)
  Sender: FDA-Public Use
  Company Number: PHHY2010ES26899

PATIENT
  Age: 59 Year
  Sex: Male

DRUGS (1)
  1. AFINITOR [Suspect]
     Indication: RENAL CANCER
     Dosage: 10 MG, UNK
     Route: 048
     Dates: start: 20100121, end: 20100421

REACTIONS (2)
  - BILE DUCT NECROSIS [None]
  - BILOMA [None]
